FAERS Safety Report 8543972-6 (Version None)
Quarter: 2012Q3

REPORT INFORMATION
  Report Type: 
  Country: None (occurrence: None)
  Receive Date: 20120727
  Receipt Date: 20120720
  Transmission Date: 20120928
  Serious: No
  Sender: FDA-Public Use
  Company Number: US-B.I. PHARMACEUTICALS,INC./RIDGEFIELD-2012-BP-16205BP

PATIENT
  Age: 88 Year
  Sex: Female

DRUGS (12)
  1. PRADAXA [Suspect]
     Indication: ATRIAL FIBRILLATION
     Dosage: 300 MG
     Route: 048
     Dates: start: 20101201
  2. ALLEGRA [Concomitant]
     Indication: HYPERSENSITIVITY
     Dosage: 60 MG
     Route: 048
  3. ATELVIA [Concomitant]
     Indication: OSTEOPOROSIS
     Route: 048
  4. FOLIC ACID [Concomitant]
     Indication: SUPPLEMENTATION THERAPY
     Dosage: 2 MG
     Route: 048
  5. IRON [Concomitant]
     Indication: ANAEMIA
  6. SINGULAIR [Concomitant]
     Indication: HYPERSENSITIVITY
     Dosage: 10 MG
     Route: 048
  7. CALCIUM [Concomitant]
     Indication: SUPPLEMENTATION THERAPY
  8. FISH OIL [Concomitant]
     Indication: SUPPLEMENTATION THERAPY
  9. SYNTHROID [Concomitant]
     Indication: THYROIDECTOMY
     Route: 048
     Dates: start: 19670101
  10. PROTONIX [Concomitant]
     Indication: PROPHYLAXIS
     Dosage: 40 MG
     Route: 048
     Dates: start: 20101201
  11. NIACIN [Concomitant]
     Indication: SUPPLEMENTATION THERAPY
  12. TOPROL-XL [Concomitant]
     Indication: HYPERTENSION
     Dosage: 100 MG
     Route: 048
     Dates: start: 20100101

REACTIONS (6)
  - VOMITING [None]
  - ABDOMINAL PAIN UPPER [None]
  - OESOPHAGEAL PAIN [None]
  - DIARRHOEA [None]
  - DYSPEPSIA [None]
  - CHILLS [None]
